FAERS Safety Report 15339666 (Version 2)
Quarter: 2018Q4

REPORT INFORMATION
  Report Type: Spontaneous
  Country: DE (occurrence: DE)
  Receive Date: 20180831
  Receipt Date: 20181012
  Transmission Date: 20190204
  Serious: Yes (Other)
  Sender: FDA-Public Use
  Company Number: DE-PFIZER INC-2018345637

PATIENT
  Age: 7 Year
  Sex: Male
  Weight: 22 kg

DRUGS (4)
  1. VIGANTOLETTEN [Concomitant]
     Active Substance: CHOLECALCIFEROL
     Dosage: 2000 IU, DAILY
     Route: 048
  2. MARCUMAR [Concomitant]
     Active Substance: PHENPROCOUMON
  3. SILDENAFIL CITRATE. [Suspect]
     Active Substance: SILDENAFIL CITRATE
     Indication: PULMONARY HYPERTENSION
     Dosage: 15 MG, THREE TIMES A DAY
     Route: 048
     Dates: start: 20180506, end: 20180813
  4. RAMIPRIL. [Concomitant]
     Active Substance: RAMIPRIL
     Dosage: 2.5 MG, 1X/DAY

REACTIONS (13)
  - Crying [Unknown]
  - Abnormal behaviour [Not Recovered/Not Resolved]
  - Hallucination [Unknown]
  - Eating disorder [Not Recovered/Not Resolved]
  - Cognitive disorder [Unknown]
  - Agitation [Unknown]
  - Memory impairment [Unknown]
  - Heart rate increased [Unknown]
  - Oxygen saturation decreased [Unknown]
  - Restlessness [Not Recovered/Not Resolved]
  - Vomiting [Unknown]
  - Anxiety [Not Recovered/Not Resolved]
  - Choking [Unknown]

NARRATIVE: CASE EVENT DATE: 2018
